FAERS Safety Report 24094242 (Version 1)
Quarter: 2024Q3

REPORT INFORMATION
  Report Type: Spontaneous
  Country: IT (occurrence: IT)
  Receive Date: 20240716
  Receipt Date: 20240716
  Transmission Date: 20241017
  Serious: No
  Sender: ALKEM
  Company Number: None

PATIENT
  Age: 78 Year
  Sex: Male

DRUGS (10)
  1. TOPIRAMATE [Suspect]
     Active Substance: TOPIRAMATE
     Indication: Ballismus
     Dosage: UNK (LOW DOSE) ((12.5 MG/DAY GRADUALLY TITRATED UP TO 37.5 MG/DAY)
     Route: 065
  2. TOPIRAMATE [Suspect]
     Active Substance: TOPIRAMATE
     Indication: Chorea
  3. QUETIAPINE FUMARATE [Suspect]
     Active Substance: QUETIAPINE FUMARATE
     Indication: Chorea
     Dosage: UNK
     Route: 065
  4. QUETIAPINE FUMARATE [Suspect]
     Active Substance: QUETIAPINE FUMARATE
     Indication: Ballismus
  5. CLONAZEPAM [Suspect]
     Active Substance: CLONAZEPAM
     Indication: Ballismus
     Dosage: UNK
     Route: 065
  6. CLONAZEPAM [Suspect]
     Active Substance: CLONAZEPAM
     Indication: Chorea
  7. TETRABENAZINE [Suspect]
     Active Substance: TETRABENAZINE
     Indication: Ballismus
     Dosage: UNK (LOW DOSE)
     Route: 065
  8. TETRABENAZINE [Suspect]
     Active Substance: TETRABENAZINE
     Indication: Chorea
  9. LEVODOPA [Concomitant]
     Active Substance: LEVODOPA
     Indication: Vascular parkinsonism
     Dosage: 400 MILLIGRAM, QD
     Route: 065
  10. LEVODOPA [Concomitant]
     Active Substance: LEVODOPA
     Dosage: 150 MG/DAY
     Route: 065

REACTIONS (3)
  - Sedation [Unknown]
  - Irritability [Unknown]
  - Restlessness [Unknown]
